FAERS Safety Report 7750164-7 (Version None)
Quarter: 2011Q3

REPORT INFORMATION
  Report Type: 
  Country: None (occurrence: None)
  Receive Date: 20110914
  Receipt Date: 20110914
  Transmission Date: 20111222
  Serious: Yes (Hospitalization)
  Sender: FDA-Public Use
  Company Number: None

PATIENT
  Age: 63 Year
  Sex: Female
  Weight: 83.914 kg

DRUGS (1)
  1. AVASTIN [Suspect]
     Indication: RETINAL VEIN OCCLUSION
     Dosage: ?
     Route: 031
     Dates: start: 20090715, end: 20091229

REACTIONS (5)
  - RETINAL DETACHMENT [None]
  - SCLERAL DISORDER [None]
  - ENDOPHTHALMITIS [None]
  - PRODUCT QUALITY ISSUE [None]
  - BLINDNESS UNILATERAL [None]
